FAERS Safety Report 23039892 (Version 2)
Quarter: 2023Q4

REPORT INFORMATION
  Report Type: Spontaneous
  Country: FR (occurrence: FR)
  Receive Date: 20231006
  Receipt Date: 20231025
  Transmission Date: 20240110
  Serious: Yes (Congenital Anomaly, Other)
  Sender: FDA-Public Use
  Company Number: FR-AFSSAPS-NC2023001190

PATIENT
  Sex: Female
  Weight: 2.94 kg

DRUGS (3)
  1. TRUVADA [Suspect]
     Active Substance: EMTRICITABINE\TENOFOVIR DISOPROXIL FUMARATE
     Indication: HIV infection
     Dosage: 200 MG/245 MG
     Route: 064
     Dates: start: 2022, end: 2022
  2. ISENTRESS [Suspect]
     Active Substance: RALTEGRAVIR POTASSIUM
     Indication: HIV infection
     Dosage: 1 DOSAGE FORM
     Route: 064
     Dates: start: 2022, end: 2022
  3. DOVATO [Suspect]
     Active Substance: DOLUTEGRAVIR SODIUM\LAMIVUDINE
     Indication: HIV infection
     Dosage: 50 MG/300 MG
     Route: 064
     Dates: start: 2022, end: 20220805

REACTIONS (5)
  - Congenital genital malformation [Not Recovered/Not Resolved]
  - Virilism [Not Recovered/Not Resolved]
  - Hyperandrogenism [Not Recovered/Not Resolved]
  - Premature baby [Not Recovered/Not Resolved]
  - Foetal exposure during pregnancy [Recovered/Resolved]

NARRATIVE: CASE EVENT DATE: 20220805
